FAERS Safety Report 4975675-9 (Version None)
Quarter: 2006Q2

REPORT INFORMATION
  Report Type: 
  Country: None (occurrence: None)
  Receive Date: 20060411
  Receipt Date: 20060327
  Transmission Date: 20061013
  Serious: Yes (Death, Other)
  Sender: FDA-Public Use
  Company Number: 2006-050

PATIENT
  Age: 56 Year
  Sex: Female

DRUGS (8)
  1. CITALOPRAM [Suspect]
     Indication: DEPRESSION
     Dosage: 20MG
  2. LINEZOLID [Suspect]
     Indication: PNEUMONIA
     Dosage: 600MG Q12H
  3. LINEZOLID [Suspect]
     Indication: PYREXIA
     Dosage: 600MG Q12H
  4. ANTIBIOTICS [Concomitant]
  5. CYPROHEPTADINE HCL [Concomitant]
  6. PROPRANOLOL [Concomitant]
  7. GANCICLOVER [Concomitant]
  8. NEUPOGEN [Concomitant]

REACTIONS (10)
  - BEDRIDDEN [None]
  - CARDIAC DISORDER [None]
  - CEREBRAL HAEMORRHAGE [None]
  - ENTEROCOCCAL INFECTION [None]
  - HYPERTENSION [None]
  - ORTHOSTATIC HYPOTENSION [None]
  - PALPITATIONS [None]
  - PLATELET COUNT DECREASED [None]
  - SEROTONIN SYNDROME [None]
  - WHITE BLOOD CELL COUNT DECREASED [None]
